FAERS Safety Report 4669020-6 (Version None)
Quarter: 2005Q2

REPORT INFORMATION
  Report Type: 
  Country: None (occurrence: None)
  Receive Date: 20050523
  Receipt Date: 20050513
  Transmission Date: 20051028
  Serious: Yes (Other)
  Sender: FDA-Public Use
  Company Number: US-JNJFOC-20050504455

PATIENT
  Sex: Male

DRUGS (1)
  1. REMINYL [Suspect]
     Route: 065

REACTIONS (1)
  - HIP SURGERY [None]
